FAERS Safety Report 8431812-5 (Version None)
Quarter: 2012Q2

REPORT INFORMATION
  Report Type: 
  Country: None (occurrence: None)
  Receive Date: 20120613
  Receipt Date: 20120604
  Transmission Date: 20120825
  Serious: No
  Sender: FDA-Public Use
  Company Number: US-B.I. PHARMACEUTICALS,INC./RIDGEFIELD-2012-BP-12971BP

PATIENT
  Sex: Female

DRUGS (9)
  1. TYLENOL W/ CODEINE [Concomitant]
     Indication: BACK PAIN
     Route: 048
  2. ASPIRIN [Concomitant]
     Indication: TRANSIENT ISCHAEMIC ATTACK
     Dosage: 81 MG
     Route: 048
     Dates: start: 19820101
  3. VITAMIN D [Concomitant]
     Indication: VITAMIN D DECREASED
     Dosage: 1000 MG
     Route: 048
     Dates: start: 20110101
  4. PRILOSEC [Concomitant]
     Indication: GASTROOESOPHAGEAL REFLUX DISEASE
     Dosage: 40 MG
     Route: 048
  5. SOTALOL HYDROCHLORIDE [Concomitant]
     Indication: CARDIAC DISORDER
     Dosage: 40 MG
     Route: 048
  6. CLONAZEPAM [Concomitant]
     Indication: MUSCLE SPASMS
     Dates: start: 20040101
  7. TEMAZEPAM [Concomitant]
     Indication: INSOMNIA
     Route: 048
     Dates: start: 20020101
  8. PRADAXA [Suspect]
     Indication: ATRIAL FIBRILLATION
     Dosage: 150 MG
     Route: 048
     Dates: start: 20120325
  9. DULCOLAX [Concomitant]
     Indication: CONSTIPATION
     Route: 048

REACTIONS (7)
  - CONTUSION [None]
  - SLEEP DISORDER [None]
  - BLINDNESS [None]
  - CONDITION AGGRAVATED [None]
  - BLADDER DISORDER [None]
  - OEDEMA PERIPHERAL [None]
  - LIMB DISCOMFORT [None]
